FAERS Safety Report 4502333-7 (Version None)
Quarter: 2004Q4

REPORT INFORMATION
  Report Type: 
  Country: None (occurrence: None)
  Receive Date: 20041116
  Receipt Date: 20041004
  Transmission Date: 20050328
  Serious: Yes (Life-Threatening)
  Sender: FDA-Public Use
  Company Number: DE-GLAXOSMITHKLINE-D0044907A

PATIENT
  Age: 16 Year
  Sex: Male
  Weight: 144 kg

DRUGS (3)
  1. LAMICTAL [Suspect]
     Indication: EPILEPSY
     Dosage: 200MG TWICE PER DAY
     Route: 048
     Dates: end: 20040820
  2. ORFIRIL LONG [Suspect]
     Indication: EPILEPSY
     Dosage: 750MG PER DAY
     Route: 065
     Dates: start: 20040504, end: 20040820
  3. TIAPRIDE [Concomitant]
     Indication: CHOREA
     Dosage: 400MG PER DAY
     Route: 065
     Dates: start: 20000101, end: 20040820

REACTIONS (5)
  - DISSEMINATED INTRAVASCULAR COAGULATION [None]
  - GASTROENTERITIS [None]
  - HEPATIC FUNCTION ABNORMAL [None]
  - PYREXIA [None]
  - RHABDOMYOLYSIS [None]
